FAERS Safety Report 5369772-6 (Version None)
Quarter: 2007Q2

REPORT INFORMATION
  Report Type: 
  Country: None (occurrence: None)
  Receive Date: 20070625
  Receipt Date: 20070615
  Transmission Date: 20071010
  Serious: Yes (Hospitalization)
  Sender: FDA-Public Use
  Company Number: US-ABBOTT-07P-163-0371919-01

PATIENT
  Sex: Male
  Weight: 72.5 kg

DRUGS (27)
  1. HUMIRA [Suspect]
     Indication: RHEUMATOID ARTHRITIS
     Route: 058
     Dates: start: 20010213
  2. HYDROCHLOROTHIAZIDE [Concomitant]
     Indication: HYPERTENSION
     Route: 048
     Dates: start: 20030903
  3. AFRIN [Concomitant]
     Indication: SINUSITIS
     Dosage: 2 SPRAY
     Route: 045
     Dates: start: 20050907
  4. NASSCORT [Concomitant]
     Indication: SINUSITIS
     Dosage: 2 SPRAY
     Route: 045
     Dates: start: 20050907
  5. IRON [Concomitant]
     Indication: MEDICAL DIET
     Route: 048
     Dates: start: 19950101
  6. CALCIUM CHLORIDE [Concomitant]
     Indication: MINERAL SUPPLEMENTATION
     Route: 048
     Dates: start: 19950101
  7. ASCORBIC ACID [Concomitant]
     Indication: VITAMIN SUPPLEMENTATION
     Route: 048
     Dates: start: 19950101
  8. MULTI-VITAMIN [Concomitant]
     Indication: VITAMIN SUPPLEMENTATION
     Route: 048
     Dates: start: 19950101
  9. SILDENAFIL CITRATE [Concomitant]
     Indication: ERECTILE DYSFUNCTION
     Route: 048
     Dates: start: 20000301
  10. CELLUVISC [Concomitant]
     Indication: DRY EYE
     Route: 061
     Dates: start: 20010105
  11. FEXOFENADINE [Concomitant]
     Indication: NASAL CONGESTION
     Route: 048
     Dates: start: 20000101
  12. VITAMIN E [Concomitant]
     Indication: VITAMIN SUPPLEMENTATION
     Route: 048
     Dates: start: 20030101
  13. THIAMINE HCL [Concomitant]
     Indication: VITAMIN SUPPLEMENTATION
     Route: 048
     Dates: start: 20030101
  14. RIBOFLAVIN [Concomitant]
     Indication: VITAMIN SUPPLEMENTATION
     Route: 048
     Dates: start: 20030101
  15. NICOTINIC ACID [Concomitant]
     Indication: MEDICAL DIET
     Route: 048
     Dates: start: 20030101
  16. PYRIDOXINE HYDROCHLORIDE [Concomitant]
     Indication: VITAMIN SUPPLEMENTATION
     Route: 048
     Dates: start: 20030101
  17. VITAMIN B12 (CYANOCOBALAMIN AND ANALOGUES) [Concomitant]
     Indication: VITAMIN SUPPLEMENTATION
     Route: 048
     Dates: start: 20030101
  18. BIOTIN [Concomitant]
     Indication: MEDICAL DIET
     Route: 048
     Dates: start: 20030101
  19. PANDOTHEMIC ACID [Concomitant]
     Indication: MEDICAL DIET
     Route: 048
     Dates: start: 20030101
  20. FOLIC ACID [Concomitant]
     Indication: VITAMIN SUPPLEMENTATION
     Route: 048
     Dates: start: 19910101
  21. TRIAMCINOLENE CREAM 0.1% [Concomitant]
     Indication: RASH
     Route: 061
     Dates: start: 20030213
  22. LANSOPRAZOLE [Concomitant]
     Indication: OESOPHAGEAL OEDEMA
     Route: 048
     Dates: start: 20061129
  23. CELECOXIB [Concomitant]
     Indication: RHEUMATOID ARTHRITIS
     Route: 048
     Dates: start: 20050305
  24. PREDNISONE TAB [Concomitant]
     Indication: RHEUMATOID ARTHRITIS
     Route: 048
     Dates: start: 20051010
  25. PREDNISONE TAB [Concomitant]
     Route: 048
     Dates: start: 19881020, end: 20051009
  26. CHONDROITIN W/GLUCOSAMINE [Concomitant]
     Indication: RHEUMATOID ARTHRITIS
     Route: 048
     Dates: start: 19970101
  27. METHOTREXATE [Concomitant]
     Indication: RHEUMATOID ARTHRITIS
     Route: 048
     Dates: start: 19910208

REACTIONS (2)
  - OSTEOLYSIS [None]
  - RESORPTION BONE INCREASED [None]
